FAERS Safety Report 9425989 (Version 1)
Quarter: 2013Q3

REPORT INFORMATION
  Report Type: Spontaneous
  Country: US (occurrence: US)
  Receive Date: 20130730
  Receipt Date: 20130730
  Transmission Date: 20140515
  Serious: No
  Sender: FDA-Public Use
  Company Number: US-US-EMD SERONO, INC.-7225838

PATIENT
  Sex: Female
  Weight: 86 kg

DRUGS (7)
  1. REBIF [Suspect]
     Indication: MULTIPLE SCLEROSIS
     Route: 058
  2. LOSARTAN POTASSIUM [Concomitant]
     Indication: PRODUCT USED FOR UNKNOWN INDICATION
  3. NEURONTIN [Concomitant]
     Indication: PRODUCT USED FOR UNKNOWN INDICATION
  4. CARDIZEM CD [Concomitant]
     Indication: PRODUCT USED FOR UNKNOWN INDICATION
  5. TYLENOL                            /00020001/ [Concomitant]
     Indication: PRODUCT USED FOR UNKNOWN INDICATION
  6. VICODIN [Concomitant]
     Indication: PRODUCT USED FOR UNKNOWN INDICATION
  7. PREMARIN                           /00073001/ [Concomitant]
     Indication: PRODUCT USED FOR UNKNOWN INDICATION

REACTIONS (2)
  - Nuclear magnetic resonance imaging abnormal [Unknown]
  - Drug ineffective [Unknown]
